FAERS Safety Report 17510485 (Version 1)
Quarter: 2020Q1

REPORT INFORMATION
  Report Type: Spontaneous
  Country: US (occurrence: US)
  Receive Date: 20200306
  Receipt Date: 20200306
  Transmission Date: 20200409
  Serious: Yes (Hospitalization)
  Sender: FDA-Public Use
  Company Number: US-HIKMA PHARMACEUTICALS USA INC.-US-H14001-20-50762

PATIENT
  Age: 68 Year
  Sex: Male

DRUGS (1)
  1. CEFAZOLIN [Suspect]
     Active Substance: CEFAZOLIN
     Indication: STAPHYLOCOCCAL SEPSIS
     Dosage: ()
     Route: 065

REACTIONS (5)
  - Hepatitis acute [Recovered/Resolved]
  - Hepatic steatosis [Recovered/Resolved]
  - Cholangitis sclerosing [Recovered/Resolved]
  - Drug-induced liver injury [Recovered/Resolved]
  - Biliary tract disorder [Recovered/Resolved]
